FAERS Safety Report 8178064-1 (Version None)
Quarter: 2012Q1

REPORT INFORMATION
  Report Type: 
  Country: None (occurrence: None)
  Receive Date: 20120127
  Receipt Date: 20111003
  Transmission Date: 20120608
  Serious: Yes (Other)
  Sender: FDA-Public Use
  Company Number: AMAG201100208

PATIENT
  Age: 67 Year
  Sex: Female
  Weight: 67.1 kg

DRUGS (18)
  1. K-DUR (POTASSIUM CHLORIDE) TABLET, 20 MEQ [Concomitant]
  2. OLMESARTAN (OLMESARTAN), 5/50 MG [Concomitant]
  3. LYRICA (PREGABALIN) CAPSULE, 50 MG [Concomitant]
  4. OXYCODONE (OXYCODONE) TABLET, 5 MG [Concomitant]
  5. PROTONIX (PANTOPRAZOLE SODIUM) TABLET, 40 MG [Concomitant]
  6. PROZAC [Concomitant]
  7. DECADRON [Concomitant]
  8. FENTANYL (FENTANYL) PATCH, 37 UG [Concomitant]
  9. DECADRON [Concomitant]
  10. ANZEMET (DOLASETRON MESILATE) TABLET, 100 MG [Concomitant]
  11. ZOFRAN (ONDANSETRON) TABLET, 1 TABS [Concomitant]
  12. BENADRYL [Concomitant]
  13. GEMZAR [Concomitant]
  14. FERAHEME [Suspect]
     Indication: IRON DEFICIENCY ANAEMIA
     Dosage: 15 MG, IV BOLUS
     Route: 040
     Dates: start: 20110908, end: 20110908
  15. AMBIEN OR (ZOLPIDEM TARTRATE) TABLET, 6.25 MG [Concomitant]
  16. CARBOPLATIN [Concomitant]
  17. ALLEGRA (FEXOFENADINE HYDROCHLORIDE) TABLET [Concomitant]
  18. IBUPROFEN (IBUPROFEN) TABLET, 50 MG [Concomitant]

REACTIONS (11)
  - OXYGEN SATURATION DECREASED [None]
  - DYSPNOEA [None]
  - ABDOMINAL PAIN [None]
  - DIZZINESS [None]
  - CHEST DISCOMFORT [None]
  - HYPERSENSITIVITY [None]
  - HYPERTENSION [None]
  - HYPOTENSION [None]
  - CHEST PAIN [None]
  - BACK PAIN [None]
  - FLUSHING [None]
